FAERS Safety Report 11015627 (Version 2)
Quarter: 2015Q2

REPORT INFORMATION
  Report Type: Spontaneous
  Country: US (occurrence: US)
  Receive Date: 20150412
  Receipt Date: 20150525
  Transmission Date: 20150821
  Serious: No
  Sender: FDA-Public Use
  Company Number: US-JNJFOC-20141217391

PATIENT
  Sex: Female
  Weight: 102.06 kg

DRUGS (3)
  1. VITAMIN D [Concomitant]
     Active Substance: CHOLECALCIFEROL
     Indication: VITAMIN D DEFICIENCY
     Route: 048
     Dates: start: 2011
  2. SIMPONI [Suspect]
     Active Substance: GOLIMUMAB
     Indication: RHEUMATOID ARTHRITIS
     Route: 058
     Dates: start: 201306
  3. SIMPONI [Suspect]
     Active Substance: GOLIMUMAB
     Indication: RHEUMATOID ARTHRITIS
     Route: 058
     Dates: start: 2009, end: 201209

REACTIONS (5)
  - Vitamin D decreased [Recovered/Resolved]
  - Memory impairment [Not Recovered/Not Resolved]
  - Peripheral swelling [Recovered/Resolved]
  - Body height decreased [Unknown]
  - Contraindication to vaccination [Unknown]

NARRATIVE: CASE EVENT DATE: 2011
